FAERS Safety Report 7277098-9 (Version None)
Quarter: 2011Q1

REPORT INFORMATION
  Report Type: 
  Country: None (occurrence: None)
  Receive Date: 20110202
  Receipt Date: 20110202
  Transmission Date: 20110831
  Serious: No
  Sender: FDA-Public Use
  Company Number: None

PATIENT
  Age: 48 Year
  Sex: Female
  Weight: 74.8435 kg

DRUGS (1)
  1. DARVOCET [Suspect]
     Indication: PAIN
     Dosage: 1 TAB 4 TIME A DAY BY MOUTH
     Route: 048
     Dates: start: 20080801

REACTIONS (2)
  - DIZZINESS [None]
  - HEADACHE [None]
